FAERS Safety Report 9195331 (Version 1)
Quarter: 2013Q1

REPORT INFORMATION
  Report Type: Spontaneous
  Country: US (occurrence: US)
  Receive Date: 20130328
  Receipt Date: 20130328
  Transmission Date: 20140127
  Serious: No
  Sender: FDA-Public Use
  Company Number: US-ALLERGAN-1213862US

PATIENT
  Age: 78 Year
  Sex: Female

DRUGS (4)
  1. LUMIGAN [Suspect]
     Indication: GLAUCOMA
     Dosage: UNK
     Route: 047
  2. COMBIGAN[R] [Suspect]
     Indication: GLAUCOMA
     Dosage: UNK
     Route: 047
  3. TOPROL [Concomitant]
     Indication: HYPERTENSION
     Dosage: UNK
     Route: 048
  4. ATACAND                            /01349502/ [Concomitant]
     Indication: HYPERTENSION
     Dosage: UNK
     Route: 048

REACTIONS (1)
  - Rhinorrhoea [Not Recovered/Not Resolved]
